FAERS Safety Report 19421467 (Version 1)
Quarter: 2021Q2

REPORT INFORMATION
  Report Type: Spontaneous
  Country: US (occurrence: US)
  Receive Date: 20210615
  Receipt Date: 20210615
  Transmission Date: 20210717
  Serious: Yes (Other)
  Sender: FDA-Public Use
  Company Number: US-ALXN-A202106819

PATIENT
  Age: 69 Year
  Sex: Male

DRUGS (1)
  1. ULTOMIRIS [Suspect]
     Active Substance: RAVULIZUMAB-CWVZ
     Indication: PAROXYSMAL NOCTURNAL HAEMOGLOBINURIA
     Dosage: UNK
     Route: 065
     Dates: start: 201905

REACTIONS (6)
  - Haemoglobin decreased [Unknown]
  - Extravascular haemolysis [Not Recovered/Not Resolved]
  - Cortisol decreased [Unknown]
  - Blood pressure decreased [Not Recovered/Not Resolved]
  - Fatigue [Not Recovered/Not Resolved]
  - Product preparation issue [Not Recovered/Not Resolved]

NARRATIVE: CASE EVENT DATE: 201905
